FAERS Safety Report 19923235 (Version 3)
Quarter: 2022Q3

REPORT INFORMATION
  Report Type: Report from Study
  Country: US (occurrence: US)
  Receive Date: 20211005
  Receipt Date: 20220718
  Transmission Date: 20221026
  Serious: Yes (Other)
  Sender: FDA-Public Use
  Company Number: US-BOEHRINGERINGELHEIM-2021-BI-116957

PATIENT
  Age: 79 Year
  Sex: Female

DRUGS (2)
  1. OFEV [Suspect]
     Active Substance: NINTEDANIB
     Indication: Idiopathic pulmonary fibrosis
     Route: 048
  2. OFEV [Suspect]
     Active Substance: NINTEDANIB
     Dates: start: 202205

REACTIONS (13)
  - Renal vascular thrombosis [Not Recovered/Not Resolved]
  - Splenic thrombosis [Not Recovered/Not Resolved]
  - Stent placement [Not Recovered/Not Resolved]
  - Myocardial infarction [Unknown]
  - Nasopharyngitis [Not Recovered/Not Resolved]
  - Cough [Recovering/Resolving]
  - Diarrhoea [Recovering/Resolving]
  - Dementia Alzheimer^s type [Not Recovered/Not Resolved]
  - Weight decreased [Not Recovered/Not Resolved]
  - Flank pain [Unknown]
  - Productive cough [Recovering/Resolving]
  - Anxiety [Unknown]
  - Dyspnoea exertional [Unknown]

NARRATIVE: CASE EVENT DATE: 20210101
